FAERS Safety Report 15934374 (Version 1)
Quarter: 2019Q1

REPORT INFORMATION
  Report Type: Report from Study
  Country: GR (occurrence: GR)
  Receive Date: 20190207
  Receipt Date: 20190207
  Transmission Date: 20190417
  Serious: Yes (Other)
  Sender: FDA-Public Use
  Company Number: PHHY2019GR026893

PATIENT
  Age: 68 Year
  Sex: Male

DRUGS (1)
  1. VOTRIENT [Suspect]
     Active Substance: PAZOPANIB HYDROCHLORIDE
     Indication: RENAL CELL CARCINOMA
     Dosage: 400 MG, UNK
     Route: 048
     Dates: start: 20180914, end: 20181218

REACTIONS (2)
  - Vision blurred [Recovered/Resolved]
  - Vitreous detachment [Recovered/Resolved]

NARRATIVE: CASE EVENT DATE: 20181218
